FAERS Safety Report 4429696-5 (Version None)
Quarter: 2004Q3

REPORT INFORMATION
  Report Type: 
  Country: None (occurrence: None)
  Receive Date: 20040816
  Receipt Date: 20040803
  Transmission Date: 20050211
  Serious: Yes (Other)
  Sender: FDA-Public Use
  Company Number: 2004053297

PATIENT
  Age: 80 Year
  Sex: Male

DRUGS (9)
  1. LIPITOR [Suspect]
     Indication: ILL-DEFINED DISORDER
     Dosage: 10 MG (10 MG, 1 IN 1 D), ORAL
     Route: 048
  2. DONEPEZIL HCL [Concomitant]
  3. CITALOPRAM HYDROBROMIDE (CITALOPRAM HYDROBROMIDE) [Concomitant]
  4. DIDRONEL PMO ^NORWICH EATON^ (CALCIUM CARBONATE, ETIDRONATE DISODIUM) [Concomitant]
  5. TILACTASE (TILACTASE) [Concomitant]
  6. FUROSEMIDE [Concomitant]
  7. NITRAZEPAM [Concomitant]
  8. ACETAMINOPHEN [Concomitant]
  9. RANITIDINE HYDROCHLORIDE [Concomitant]

REACTIONS (5)
  - ALANINE AMINOTRANSFERASE INCREASED [None]
  - ASPARTATE AMINOTRANSFERASE INCREASED [None]
  - BLOOD ALKALINE PHOSPHATASE INCREASED [None]
  - BLOOD BILIRUBIN INCREASED [None]
  - RHABDOMYOLYSIS [None]
